FAERS Safety Report 6166148-9 (Version None)
Quarter: 2009Q2

REPORT INFORMATION
  Report Type: 
  Country: None (occurrence: None)
  Receive Date: 20090424
  Receipt Date: 20090421
  Transmission Date: 20091009
  Serious: Yes (Hospitalization)
  Sender: FDA-Public Use
  Company Number: US-B.I. PHARMACEUTICALS,INC./RIDGEFIELD-2009-BP-05037BP

PATIENT
  Sex: Male

DRUGS (9)
  1. SPIRIVA [Suspect]
     Indication: EMPHYSEMA
     Dosage: 18MCG
     Route: 055
     Dates: start: 20070101
  2. SPIRIVA [Suspect]
     Indication: CHRONIC OBSTRUCTIVE PULMONARY DISEASE
  3. LEVAQUIN [Suspect]
     Indication: PNEUMONIA
     Dates: start: 20090401
  4. LASIX [Concomitant]
     Indication: HEART RATE IRREGULAR
  5. POTASSIUM CHLORIDE [Concomitant]
  6. COUMADIN [Concomitant]
  7. ATENOLOL [Concomitant]
  8. FLUOXETINE [Concomitant]
     Indication: DEPRESSION
  9. METFORMIN HCL [Concomitant]
     Indication: BLOOD GLUCOSE ABNORMAL

REACTIONS (2)
  - BLOOD GLUCOSE INCREASED [None]
  - PNEUMONIA [None]
